FAERS Safety Report 4660608-5 (Version None)
Quarter: 2005Q2

REPORT INFORMATION
  Report Type: 
  Country: None (occurrence: None)
  Receive Date: 20050425
  Receipt Date: 20050105
  Transmission Date: 20051028
  Serious: No
  Sender: FDA-Public Use
  Company Number: US092563

PATIENT
  Age: 50 Year
  Sex: Male
  Weight: 77.5 kg

DRUGS (1)
  1. SENSIPAR [Suspect]
     Indication: HYPERPARATHYROIDISM SECONDARY
     Dosage: 30 MG, 1 IN 1 DAYS, PO
     Route: 048
     Dates: start: 20040830

REACTIONS (2)
  - BLOOD PARATHYROID HORMONE INCREASED [None]
  - THERAPEUTIC RESPONSE DECREASED [None]
